FAERS Safety Report 6692287-X (Version None)
Quarter: 2010Q2

REPORT INFORMATION
  Report Type: 
  Country: None (occurrence: None)
  Receive Date: 20100419
  Receipt Date: 20100409
  Transmission Date: 20101027
  Serious: Yes (Hospitalization)
  Sender: FDA-Public Use
  Company Number: 2010SP001092

PATIENT
  Age: 18 Year
  Sex: Male
  Weight: 75.3 kg

DRUGS (3)
  1. CICLESONIDE HFA [Suspect]
     Indication: RHINITIS PERENNIAL
     Dosage: 160 UG; QD; INHALATION; 160 UG; QD; INHALATION
     Route: 055
     Dates: start: 20100326, end: 20100408
  2. CICLESONIDE HFA [Suspect]
     Indication: RHINITIS PERENNIAL
     Dosage: 160 UG; QD; INHALATION; 160 UG; QD; INHALATION
     Route: 055
     Dates: start: 20100410
  3. CLARITIN [Concomitant]

REACTIONS (1)
  - APPENDICITIS [None]
